FAERS Safety Report 8605236-1 (Version None)
Quarter: 2012Q3

REPORT INFORMATION
  Report Type: 
  Country: None (occurrence: None)
  Receive Date: 20120820
  Receipt Date: 20120809
  Transmission Date: 20120928
  Serious: Yes (Hospitalization)
  Sender: FDA-Public Use
  Company Number: US-US-EMD SERONO, INC.-7069661

PATIENT
  Age: 34 Year
  Sex: Female
  Weight: 65 kg

DRUGS (4)
  1. TEGRETOL [Concomitant]
     Indication: EPILEPSY
  2. VALIUM [Concomitant]
     Indication: EPILEPSY
  3. REBIF [Suspect]
     Indication: MULTIPLE SCLEROSIS
  4. DILANTIN [Concomitant]
     Indication: EPILEPSY

REACTIONS (1)
  - MYOCARDIAL INFARCTION [None]
